FAERS Safety Report 5556903-8 (Version None)
Quarter: 2007Q4

REPORT INFORMATION
  Report Type: 
  Country: None (occurrence: None)
  Receive Date: 20071214
  Receipt Date: 20071205
  Transmission Date: 20080405
  Serious: Yes (Hospitalization, Other)
  Sender: FDA-Public Use
  Company Number: PHBS2007JP19019

PATIENT
  Age: 39 Year
  Sex: Female

DRUGS (21)
  1. VOLTAREN [Suspect]
     Indication: PAIN OF SKIN
     Route: 048
     Dates: start: 20071025, end: 20071026
  2. VOLTAREN [Suspect]
     Dosage: UNK, UNK
     Route: 048
     Dates: start: 20070901, end: 20070901
  3. POLARAMINE [Suspect]
     Dosage: 6 MG/DAY
     Route: 048
     Dates: start: 20071016, end: 20071026
  4. CRAVIT [Suspect]
     Indication: CYSTITIS
     Dosage: 200 MG/DAY
     Route: 048
     Dates: start: 20071022, end: 20071026
  5. ATARAX [Suspect]
     Indication: PRURITUS
     Dosage: 50 MG/DAY
     Route: 030
     Dates: start: 20071025, end: 20071028
  6. ATARAX [Suspect]
     Dosage: 50 MG/DAY
     Route: 030
     Dates: start: 20071022, end: 20071022
  7. LAMISIL [Suspect]
     Indication: FUNGAL SKIN INFECTION
     Dosage: 125 MG/DAY
     Route: 048
     Dates: start: 20071024, end: 20071025
  8. VOLTAREN [Suspect]
     Indication: PAIN OF SKIN
     Dosage: 75 MG/DAY
     Route: 048
     Dates: start: 20071001, end: 20071001
  9. VOLTAREN [Suspect]
     Dosage: 75 MG/DAY
     Route: 048
     Dates: start: 20071026, end: 20071029
  10. PENTAGIN [Suspect]
     Indication: PRURITUS
     Dosage: 30 MG/DAY
     Route: 030
     Dates: start: 20071023, end: 20071029
  11. PREDONINE [Concomitant]
     Indication: ERYTHEMA
     Dosage: 30 MG, UNK
     Route: 048
     Dates: start: 20071023, end: 20071030
  12. BEZATOL - SLOW RELEASE [Concomitant]
     Indication: HYPERLIPIDAEMIA
     Dosage: 400 MG, UNK
     Route: 048
     Dates: start: 20060901
  13. FAMOTIDINE [Concomitant]
     Indication: GASTRITIS
     Dosage: 40 MG, UNK
     Route: 048
     Dates: start: 20041201
  14. EBASTEL [Concomitant]
     Dosage: 10 MG, UNK
     Route: 048
     Dates: start: 20051201
  15. BLOPRESS [Concomitant]
     Dosage: 4 MG, UNK
     Route: 048
     Dates: start: 20050201
  16. THEO-DUR [Concomitant]
     Dosage: 200 MG, UNK
     Route: 048
     Dates: start: 20061201
  17. HALCION [Concomitant]
     Dosage: 1 MG, UNK
     Route: 048
     Dates: start: 20060201
  18. SEROQUEL [Concomitant]
     Dosage: 100 MG, UNK
     Route: 048
     Dates: start: 20061001
  19. SILECE [Concomitant]
     Dosage: 8 MG, UNK
     Route: 048
     Dates: start: 20060901
  20. SEPAZON [Concomitant]
     Dosage: 6 MG, UNK
     Route: 048
     Dates: start: 20061001
  21. TOLEDOMIN [Concomitant]
     Dosage: 75 MG, UNK
     Route: 048
     Dates: start: 20071001

REACTIONS (12)
  - ALANINE AMINOTRANSFERASE INCREASED [None]
  - ASPARTATE AMINOTRANSFERASE INCREASED [None]
  - BLOOD ALKALINE PHOSPHATASE INCREASED [None]
  - BLOOD BILIRUBIN INCREASED [None]
  - BLOOD CREATININE INCREASED [None]
  - BLOOD LACTATE DEHYDROGENASE INCREASED [None]
  - BLOOD UREA INCREASED [None]
  - HEPATIC FUNCTION ABNORMAL [None]
  - INFLAMMATION [None]
  - PYREXIA [None]
  - RENAL IMPAIRMENT [None]
  - WOUND INFECTION STAPHYLOCOCCAL [None]
